FAERS Safety Report 5314009-7 (Version None)
Quarter: 2007Q2

REPORT INFORMATION
  Report Type: 
  Country: None (occurrence: None)
  Receive Date: 20070501
  Receipt Date: 20070418
  Transmission Date: 20071010
  Serious: Yes (Hospitalization)
  Sender: FDA-Public Use
  Company Number: PL-ELI_LILLY_AND_COMPANY-PL200704005788

PATIENT
  Age: 71 Year
  Sex: Male

DRUGS (1)
  1. LISPRO 25LIS75NPL [Suspect]
     Indication: DIABETES MELLITUS
     Dates: start: 20060101

REACTIONS (1)
  - ANAEMIA HAEMOLYTIC AUTOIMMUNE [None]
